FAERS Safety Report 24570660 (Version 4)
Quarter: 2025Q1

REPORT INFORMATION
  Report Type: Spontaneous
  Country: JP (occurrence: JP)
  Receive Date: 20241031
  Receipt Date: 20250127
  Transmission Date: 20250409
  Serious: Yes (Hospitalization)
  Sender: JOHNSON AND JOHNSON
  Company Number: JP-MTPC-MTPC2024-0022215

PATIENT
  Sex: Male

DRUGS (3)
  1. REMICADE [Suspect]
     Active Substance: INFLIXIMAB
     Indication: Crohn^s disease
     Route: 041
  2. REMICADE [Suspect]
     Active Substance: INFLIXIMAB
     Dosage: 600 MILLIGRAM, QD
     Route: 041
  3. REMICADE [Suspect]
     Active Substance: INFLIXIMAB
     Dosage: 600 MILLIGRAM, QD
     Route: 041

REACTIONS (2)
  - IgA nephropathy [Recovered/Resolved with Sequelae]
  - Tubulointerstitial nephritis [Recovered/Resolved with Sequelae]

NARRATIVE: CASE EVENT DATE: 20180601
